FAERS Safety Report 8053614-4 (Version None)
Quarter: 2012Q1

REPORT INFORMATION
  Report Type: 
  Country: None (occurrence: None)
  Receive Date: 20120118
  Receipt Date: 20120109
  Transmission Date: 20120608
  Serious: Yes (Hospitalization)
  Sender: FDA-Public Use
  Company Number: US-BAYER-2010-002233

PATIENT
  Age: 35 Year
  Sex: Female
  Weight: 84.807 kg

DRUGS (3)
  1. LOESTRIN 1.5/30 [Concomitant]
     Dosage: UNK
     Dates: start: 20090501
  2. YASMIN [Suspect]
     Dosage: UNK
     Route: 048
     Dates: start: 20090201, end: 20090401
  3. YAZ [Suspect]
     Dosage: UNK
     Route: 048
     Dates: start: 20090201, end: 20090401

REACTIONS (1)
  - PULMONARY EMBOLISM [None]
